FAERS Safety Report 7154422-9 (Version None)
Quarter: 2010Q4

REPORT INFORMATION
  Report Type: 
  Country: None (occurrence: None)
  Receive Date: 20101213
  Receipt Date: 20101203
  Transmission Date: 20110411
  Serious: Yes (Other)
  Sender: FDA-Public Use
  Company Number: US-MPIJNJ-2010-05625

PATIENT
  Age: 12 Year
  Sex: Male
  Weight: 36.6 kg

DRUGS (2)
  1. VELCADE [Suspect]
     Indication: EPITHELIOID SARCOMA
     Dosage: 1.3 MG/M2, CYCLIC
     Route: 042
     Dates: start: 20101005, end: 20101103
  2. VORINOSTAT [Suspect]
     Indication: EPITHELIOID SARCOMA
     Dosage: 300 MG/M2, CYCLIC
     Route: 048
     Dates: start: 20101005, end: 20101103

REACTIONS (2)
  - TINNITUS [None]
  - VOMITING [None]
